FAERS Safety Report 4585357-3 (Version None)
Quarter: 2005Q1

REPORT INFORMATION
  Report Type: 
  Country: None (occurrence: None)
  Receive Date: 20050217
  Receipt Date: 20050203
  Transmission Date: 20050727
  Serious: Yes (Other)
  Sender: FDA-Public Use
  Company Number: 200510486FR

PATIENT
  Age: 80 Year
  Sex: Male

DRUGS (4)
  1. TORENTAL [Suspect]
     Route: 048
  2. TRIATEC [Concomitant]
     Route: 048
  3. SPECIAFOLDINE [Concomitant]
     Route: 048
  4. FONZYLANE [Concomitant]
     Route: 048

REACTIONS (2)
  - CATARACT [None]
  - VISUAL ACUITY REDUCED [None]
